FAERS Safety Report 19732848 (Version 1)
Quarter: 2021Q3

REPORT INFORMATION
  Report Type: Spontaneous
  Country: US (occurrence: US)
  Receive Date: 20210822
  Receipt Date: 20210822
  Transmission Date: 20211014
  Serious: Yes (Hospitalization)
  Sender: FDA-Public Use
  Company Number: None

PATIENT
  Age: 3 Year
  Sex: Female

DRUGS (3)
  1. IMMUNE GLOBULIN (HUMAN) 10 GM/100ML IV SOLN [Concomitant]
     Dates: start: 20210615, end: 20210615
  2. IMMUNE GLOBULIN (HUMAN) [Suspect]
     Active Substance: HUMAN IMMUNOGLOBULIN G
     Dates: start: 20210513, end: 20210615
  3. IMMUNE GLOBULIN (HUMAN) 10 GM/100ML IV SOLN [Concomitant]
     Dates: start: 20210513, end: 20210513

REACTIONS (2)
  - Agitation [None]
  - Infusion related reaction [None]

NARRATIVE: CASE EVENT DATE: 20210617
